FAERS Safety Report 9641938 (Version 1)
Quarter: 2013Q4

REPORT INFORMATION
  Report Type: Spontaneous
  Country: FR (occurrence: FR)
  Receive Date: 20131023
  Receipt Date: 20131023
  Transmission Date: 20140711
  Serious: Yes (Life-Threatening)
  Sender: FDA-Public Use
  Company Number: FR-PFIZER INC-2013299677

PATIENT
  Age: 40 Year
  Sex: Female

DRUGS (1)
  1. ADEPAL [Suspect]
     Indication: ORAL CONTRACEPTION
     Route: 048

REACTIONS (1)
  - Intestinal infarction [Recovered/Resolved with Sequelae]
